FAERS Safety Report 16239599 (Version 1)
Quarter: 2019Q2

REPORT INFORMATION
  Report Type: Spontaneous
  Country: US (occurrence: US)
  Receive Date: 20190425
  Receipt Date: 20190425
  Transmission Date: 20190711
  Serious: Yes (Other)
  Sender: FDA-Public Use
  Company Number: US-MYLANLABS-2019M1039033

PATIENT
  Age: 15 Year
  Sex: Male

DRUGS (2)
  1. METHYLPHENIDATE. [Suspect]
     Active Substance: METHYLPHENIDATE
     Dosage: IMMEDIATE RELEASE; EVERY NOON AND EVERY 5 PM
     Route: 065
  2. METHYLPHENIDATE. [Suspect]
     Active Substance: METHYLPHENIDATE
     Indication: NARCOLEPSY
     Dosage: LONG ACTING; EVERY NOON AND EVERY 5 PM
     Route: 065

REACTIONS (1)
  - Arrhythmia [Unknown]
